FAERS Safety Report 5940828-X (Version None)
Quarter: 2008Q4

REPORT INFORMATION
  Report Type: 
  Country: None (occurrence: None)
  Receive Date: 20081104
  Receipt Date: 20081020
  Transmission Date: 20090506
  Serious: Yes (Death)
  Sender: FDA-Public Use
  Company Number: TW-ROCHE-592594

PATIENT
  Age: 44 Year
  Sex: Male

DRUGS (1)
  1. PEGASYS [Suspect]
     Indication: HEPATITIS B
     Route: 065
     Dates: start: 20081008, end: 20081008

REACTIONS (2)
  - HAEMATEMESIS [None]
  - PULMONARY HAEMORRHAGE [None]
